FAERS Safety Report 11273011 (Version 3)
Quarter: 2015Q3

REPORT INFORMATION
  Report Type: Spontaneous
  Country: US (occurrence: US)
  Receive Date: 20150715
  Receipt Date: 20150922
  Transmission Date: 20151125
  Serious: Yes (Death, Other)
  Sender: FDA-Public Use
  Company Number: US-ASTRAZENECA-2014SE01015

PATIENT
  Age: 29441 Day
  Sex: Female
  Weight: 59 kg

DRUGS (48)
  1. HYDRALAZINE [Concomitant]
     Active Substance: HYDRALAZINE HYDROCHLORIDE
  2. RANITIDINE [Concomitant]
     Active Substance: RANITIDINE\RANITIDINE HYDROCHLORIDE
     Dates: start: 20001009
  3. TRIAM/HCTZ [Concomitant]
     Dosage: 37.5-25MG
     Dates: start: 20001009
  4. DIGITEK [Concomitant]
     Active Substance: DIGOXIN
     Route: 048
     Dates: start: 20020607
  5. HYDROXYZINE HYDROCHLORIDE. [Concomitant]
     Active Substance: HYDROXYZINE HYDROCHLORIDE
     Route: 048
     Dates: start: 20040919
  6. GLIPIZIDE. [Concomitant]
     Active Substance: GLIPIZIDE
     Route: 048
     Dates: start: 20050601
  7. CREON [Concomitant]
     Active Substance: PANCRELIPASE AMYLASE\PANCRELIPASE LIPASE\PANCRELIPASE PROTEASE
     Route: 048
     Dates: start: 20111215
  8. FOLIC ACID. [Concomitant]
     Active Substance: FOLIC ACID
     Route: 048
     Dates: start: 20091119
  9. BYETTA [Suspect]
     Active Substance: EXENATIDE
     Route: 065
     Dates: start: 200604, end: 200702
  10. SYMBICORT [Concomitant]
     Active Substance: BUDESONIDE\FORMOTEROL FUMARATE DIHYDRATE
     Dosage: 160/4.5, TWO PUFFS B.I.D.
  11. LIPITOR [Concomitant]
     Active Substance: ATORVASTATIN CALCIUM
  12. DILTIAZ [Concomitant]
     Dosage: 120/24. EVERY DAY
     Route: 048
     Dates: start: 20020607
  13. TOPROL XL [Concomitant]
     Active Substance: METOPROLOL SUCCINATE
     Dates: start: 20020607
  14. SKELAXIN [Concomitant]
     Active Substance: METAXALONE
     Dates: start: 20040416
  15. FUROSEMIDE. [Concomitant]
     Active Substance: FUROSEMIDE
     Route: 048
     Dates: start: 20050705
  16. NEXIUM [Concomitant]
     Active Substance: ESOMEPRAZOLE MAGNESIUM
     Route: 048
     Dates: start: 20070313
  17. PROMETHAZINE [Concomitant]
     Active Substance: PROMETHAZINE\PROMETHAZINE HYDROCHLORIDE
     Route: 048
     Dates: start: 20110201
  18. PREDNISONE. [Concomitant]
     Active Substance: PREDNISONE
     Route: 048
     Dates: start: 20091119
  19. LOPRESSOR [Concomitant]
     Active Substance: METOPROLOL TARTRATE
  20. CEPHALEXIN. [Concomitant]
     Active Substance: CEPHALEXIN
     Dates: start: 20040302
  21. LORAZEPAM. [Concomitant]
     Active Substance: LORAZEPAM
     Route: 048
     Dates: start: 20110216
  22. MIRTAZAPINE. [Concomitant]
     Active Substance: MIRTAZAPINE
     Route: 048
     Dates: start: 20111105
  23. MECLIZINE [Concomitant]
     Active Substance: MECLIZINE\MECLIZINE HYDROCHLORIDE
     Route: 048
     Dates: start: 20101207
  24. BYETTA [Suspect]
     Active Substance: EXENATIDE
     Route: 065
     Dates: start: 20060828
  25. BYETTA [Suspect]
     Active Substance: EXENATIDE
     Route: 065
     Dates: start: 20110502
  26. DIOVAN [Concomitant]
     Active Substance: VALSARTAN
  27. GLUCOPHAGE [Concomitant]
     Active Substance: METFORMIN HYDROCHLORIDE
     Dates: start: 20001009
  28. TIMOLOL MALEATE. [Concomitant]
     Active Substance: TIMOLOL MALEATE
     Route: 047
     Dates: start: 20001027
  29. ACETAZOLAMIDE. [Concomitant]
     Active Substance: ACETAZOLAMIDE
     Route: 048
     Dates: start: 20050816
  30. VYTORIN [Concomitant]
     Active Substance: EZETIMIBE\SIMVASTATIN
     Dosage: 10-40MG, AT BEDTIME
     Route: 048
     Dates: start: 20070313
  31. SODIUM BICARBONATE. [Concomitant]
     Active Substance: SODIUM BICARBONATE
     Route: 048
     Dates: start: 20091130
  32. MUCINEX [Concomitant]
     Active Substance: GUAIFENESIN
     Route: 048
     Dates: start: 20050524
  33. DETROL LA [Concomitant]
     Active Substance: TOLTERODINE TARTRATE
     Route: 048
     Dates: start: 20071102
  34. MELOXICAM. [Concomitant]
     Active Substance: MELOXICAM
     Route: 048
     Dates: start: 20101207
  35. ACTOS [Concomitant]
     Active Substance: PIOGLITAZONE HYDROCHLORIDE
  36. ALTACE [Concomitant]
     Active Substance: RAMIPRIL
     Route: 048
     Dates: start: 20020105
  37. LEVAQUIN [Concomitant]
     Active Substance: LEVOFLOXACIN
     Route: 048
     Dates: start: 20090427
  38. BENZONATATE. [Concomitant]
     Active Substance: BENZONATATE
     Route: 048
     Dates: start: 20090305
  39. LANSOPRAZOLE. [Concomitant]
     Active Substance: LANSOPRAZOLE
     Route: 048
     Dates: start: 20120123
  40. NITROQUICK [Concomitant]
     Active Substance: NITROGLYCERIN
     Dates: start: 20021202
  41. WARFARIN [Concomitant]
     Active Substance: WARFARIN
     Route: 048
     Dates: start: 20110115
  42. AMLODIPINE BESYLATE. [Concomitant]
     Active Substance: AMLODIPINE BESYLATE
     Route: 048
     Dates: start: 20110928
  43. DRONABINOL. [Concomitant]
     Active Substance: DRONABINOL
     Route: 048
     Dates: start: 20111215
  44. MORPHINE SULFATE. [Concomitant]
     Active Substance: MORPHINE SULFATE
     Route: 048
     Dates: start: 20120117
  45. BYETTA [Suspect]
     Active Substance: EXENATIDE
     Route: 065
     Dates: start: 20060420
  46. CYPROHEPTADINE. [Concomitant]
     Active Substance: CYPROHEPTADINE
     Route: 048
     Dates: start: 20111128
  47. COMBIVENT [Concomitant]
     Active Substance: ALBUTEROL SULFATE\IPRATROPIUM BROMIDE
     Dosage: INHALETWO PUFFS 4 TIMES DAILY
     Route: 048
     Dates: start: 20091119
  48. R-TANNA [Concomitant]
     Active Substance: CHLORPHENIRAMINE TANNATE\PHENYLEPHRINE TANNATE
     Dosage: 9-25 MG, TWO TIMES A DAY
     Route: 048
     Dates: start: 20100603

REACTIONS (5)
  - Bile duct adenocarcinoma [Unknown]
  - Ascites [Unknown]
  - Pancreatitis relapsing [Unknown]
  - Pancreatic carcinoma metastatic [Fatal]
  - Jaundice [Unknown]

NARRATIVE: CASE EVENT DATE: 20100212
